FAERS Safety Report 9037019 (Version 1)
Quarter: 2013Q1

REPORT INFORMATION
  Report Type: Spontaneous
  Country: US (occurrence: None)
  Receive Date: 20130123
  Receipt Date: 20130123
  Transmission Date: 20140127
  Serious: No
  Sender: FDA-Public Use
  Company Number: None

PATIENT
  Age: 67 Year
  Sex: Male

DRUGS (2)
  1. SUTENT 25MG PFIZER [Suspect]
     Dosage: 25MG DAILY X5DAYSQ28D. BY MOUTH
     Route: 048
     Dates: start: 201104, end: 201301
  2. SUTENT 25MG PFIZER [Suspect]
     Dosage: 25MG DAILY X5DAYSQ28D. BY MOUTH
     Route: 048
     Dates: start: 201104, end: 201301

REACTIONS (2)
  - Treatment failure [None]
  - Therapy cessation [None]
